FAERS Safety Report 14316956 (Version 1)
Quarter: 2017Q4

REPORT INFORMATION
  Report Type: Spontaneous
  Country: FI (occurrence: FI)
  Receive Date: 20171222
  Receipt Date: 20171222
  Transmission Date: 20180321
  Serious: Yes (Congenital Anomaly, Other)
  Sender: FDA-Public Use
  Company Number: FI-BEH-SAGL/03/15/LIT/K

PATIENT
  Age: 1 Day

DRUGS (4)
  1. SANDOGLOBULIN [Suspect]
     Active Substance: HUMAN IMMUNOGLOBULIN G
     Dosage: UNK
     Route: 064
  2. SANDOGLOBULIN [Suspect]
     Active Substance: HUMAN IMMUNOGLOBULIN G
     Indication: PROPHYLAXIS
     Dosage: DAILY DOSE QUANTITY: 1, DAILY DOSE UNIT: G/KG B.W.
     Route: 064
  3. SANDOGLOBULIN [Suspect]
     Active Substance: HUMAN IMMUNOGLOBULIN G
     Dosage: DAILY DOSE QUANTITY: 1, DAILY DOSE UNIT: G/KG B.W.
     Route: 064
  4. PREDNISONE. [Concomitant]
     Active Substance: PREDNISONE
     Route: 064

REACTIONS (2)
  - Neonatal lupus erythematosus [Recovered/Resolved]
  - Exposure during pregnancy [Unknown]

NARRATIVE: CASE EVENT DATE: 1999
